FAERS Safety Report 20298998 (Version 5)
Quarter: 2022Q2

REPORT INFORMATION
  Report Type: Spontaneous
  Country: GB (occurrence: GB)
  Receive Date: 20220105
  Receipt Date: 20220406
  Transmission Date: 20220721
  Serious: Yes (Death, Other)
  Sender: FDA-Public Use
  Company Number: GB-EUSA PHARMA (UK) LIMITED-2020GB000052

PATIENT
  Age: 66 Year
  Sex: Female

DRUGS (21)
  1. METHYLPREDNISOLONE [Suspect]
     Active Substance: METHYLPREDNISOLONE
     Indication: Immune effector cell-associated neurotoxicity syndrome
     Dosage: UNKNOWN
     Route: 065
  2. METHYLPREDNISOLONE [Suspect]
     Active Substance: METHYLPREDNISOLONE
     Indication: Immune effector cell-associated neurotoxicity syndrome
  3. ANAKINRA [Suspect]
     Active Substance: ANAKINRA
     Indication: Immune effector cell-associated neurotoxicity syndrome
     Dosage: UNKNOWN
     Route: 065
  4. ANAKINRA [Suspect]
     Active Substance: ANAKINRA
     Indication: Immune effector cell-associated neurotoxicity syndrome
     Dosage: UNKNOWN
     Route: 065
     Dates: start: 20200124
  5. ANAKINRA [Suspect]
     Active Substance: ANAKINRA
     Indication: Myasthenic syndrome
  6. DEXAMETHASONE [Suspect]
     Active Substance: DEXAMETHASONE
     Indication: Immune effector cell-associated neurotoxicity syndrome
     Dosage: UNKNOWN
     Route: 065
     Dates: start: 20200121
  7. DEXAMETHASONE [Suspect]
     Active Substance: DEXAMETHASONE
     Indication: Immune effector cell-associated neurotoxicity syndrome
     Dosage: UNKNOWN
     Route: 065
  8. SYLVANT [Suspect]
     Active Substance: SILTUXIMAB
     Indication: Cytokine release syndrome
     Route: 042
     Dates: start: 20191230
  9. SYLVANT [Suspect]
     Active Substance: SILTUXIMAB
     Route: 042
     Dates: start: 20200210
  10. TOCILIZUMAB [Suspect]
     Active Substance: TOCILIZUMAB
     Indication: Immune effector cell-associated neurotoxicity syndrome
     Dosage: UNKNOWN, QID (4 TIMES)
     Route: 065
     Dates: start: 20200113, end: 20200120
  11. TOCILIZUMAB [Suspect]
     Active Substance: TOCILIZUMAB
     Indication: Immune effector cell-associated neurotoxicity syndrome
     Dosage: UNKNOWN
     Route: 065
  12. TOCILIZUMAB [Suspect]
     Active Substance: TOCILIZUMAB
     Indication: Cytokine release syndrome
  13. ACYCLOVIR [Concomitant]
     Active Substance: ACYCLOVIR
     Indication: Lymphocyte adoptive therapy
     Dosage: UNKNOWN
     Route: 065
     Dates: start: 20200103
  14. AZATHIOPRINE [Concomitant]
     Active Substance: AZATHIOPRINE
     Indication: Myasthenic syndrome
     Dosage: UNKNOWN
     Route: 065
  15. CIPROFLOXACIN [Concomitant]
     Active Substance: CIPROFLOXACIN
     Indication: Lymphocyte adoptive therapy
     Dosage: UNKNOWN
     Route: 065
     Dates: start: 20200103
  16. FLUCONAZOLE [Concomitant]
     Active Substance: FLUCONAZOLE
     Indication: Lymphocyte adoptive therapy
     Dosage: UNKNOWN
     Route: 065
     Dates: start: 20200106
  17. LEVETIRACETAM [Concomitant]
     Active Substance: LEVETIRACETAM
     Indication: Lymphocyte adoptive therapy
     Dosage: UNKNOWN
     Route: 065
     Dates: start: 20200108
  18. METOCLOPRAMIDE [Concomitant]
     Active Substance: METOCLOPRAMIDE
     Indication: Lymphocyte adoptive therapy
     Dosage: UNKNOWN
     Route: 065
     Dates: start: 20200103
  19. ONDANSETRON [Concomitant]
     Active Substance: ONDANSETRON
     Indication: Lymphocyte adoptive therapy
     Dosage: UNKNOWN
     Route: 065
     Dates: start: 20200103
  20. PREDNISOLONE [Concomitant]
     Active Substance: PREDNISOLONE
     Indication: Myasthenic syndrome
     Route: 065
     Dates: start: 20200210
  21. FILGRASTIM [Concomitant]
     Active Substance: FILGRASTIM
     Indication: Lymphocyte adoptive therapy
     Dosage: UNKNOWN
     Route: 065
     Dates: start: 20200130

REACTIONS (7)
  - Toxicity to various agents [Fatal]
  - Diffuse large B-cell lymphoma [Fatal]
  - Immune effector cell-associated neurotoxicity syndrome [Unknown]
  - Cytokine release syndrome [Unknown]
  - Disease progression [Fatal]
  - Neoplasm progression [Fatal]
  - Condition aggravated [Unknown]

NARRATIVE: CASE EVENT DATE: 20200301
